FAERS Safety Report 8541110-7 (Version None)
Quarter: 2012Q3

REPORT INFORMATION
  Report Type: 
  Country: None (occurrence: None)
  Receive Date: 20120726
  Receipt Date: 20111010
  Transmission Date: 20120928
  Serious: No
  Sender: FDA-Public Use
  Company Number: US-ASTRAZENECA-2011SE49701

PATIENT
  Age: 57 Year
  Sex: Male
  Weight: 72.6 kg

DRUGS (15)
  1. SEROQUEL [Suspect]
     Route: 048
  2. SEROQUEL [Suspect]
     Route: 048
  3. SERTRALINE HYDROCHLORIDE [Concomitant]
     Indication: MANIA
     Dosage: 2 TBALETS EVERY DAY
     Route: 048
  4. SERTRALINE HYDROCHLORIDE [Concomitant]
     Indication: DEPRESSION
     Dosage: 2 TBALETS EVERY DAY
     Route: 048
  5. CLONEAPAM [Concomitant]
     Indication: DEPRESSION
     Dosage: 3 TABLETS EVERY THIRD DAY
     Route: 048
  6. DIVALPROEX SODIUM [Concomitant]
  7. CYLPROATPTAD [Concomitant]
  8. SEROQUEL [Suspect]
     Indication: BIPOLAR I DISORDER
     Route: 048
     Dates: start: 20050101
  9. SEROQUEL [Suspect]
     Route: 048
  10. SEROQUEL [Suspect]
     Route: 048
  11. SEROQUEL [Suspect]
     Indication: SLEEP DISORDER
     Route: 048
     Dates: start: 20050101
  12. BUPROPINE [Concomitant]
     Indication: MANIA
     Route: 048
  13. CLONEAPAM [Concomitant]
     Indication: MANIA
     Dosage: 3 TABLETS EVERY THIRD DAY
     Route: 048
  14. PROZAC [Suspect]
  15. BUPROPINE [Concomitant]
     Indication: DEPRESSION
     Route: 048

REACTIONS (7)
  - FEELING ABNORMAL [None]
  - THERAPEUTIC RESPONSE UNEXPECTED [None]
  - DRUG PRESCRIBING ERROR [None]
  - IMPAIRED DRIVING ABILITY [None]
  - MEMORY IMPAIRMENT [None]
  - DRUG EFFECT INCREASED [None]
  - TREMOR [None]
